FAERS Safety Report 20946003 (Version 1)
Quarter: 2022Q2

REPORT INFORMATION
  Report Type: Spontaneous
  Country: US (occurrence: None)
  Receive Date: 20220609
  Receipt Date: 20220609
  Transmission Date: 20220720
  Serious: No
  Sender: FDA-Public Use
  Company Number: None

PATIENT
  Age: 77 Year
  Sex: Male
  Weight: 94.35 kg

DRUGS (19)
  1. TAVALISSE [Suspect]
     Active Substance: FOSTAMATINIB
     Dosage: FREQUENCY : TWICE A DAY;?
     Route: 048
     Dates: start: 20220414
  2. ATENOLOL [Concomitant]
     Active Substance: ATENOLOL
  3. BENADRYL [Concomitant]
     Active Substance: DIPHENHYDRAMINE HYDROCHLORIDE
  4. MINERALS\VITAMINS [Concomitant]
     Active Substance: MINERALS\VITAMINS
  5. COENZYME Q10 [Concomitant]
     Active Substance: DIETARY SUPPLEMENT\UBIDECARENONE
  6. DICLOFENAC [Concomitant]
     Active Substance: DICLOFENAC
  7. LATANOPROST [Concomitant]
     Active Substance: LATANOPROST
  8. LEVOTHYROXINE [Concomitant]
     Active Substance: LEVOTHYROXINE
  9. MELOXICAM [Concomitant]
     Active Substance: MELOXICAM
  10. METFORMIN [Concomitant]
     Active Substance: METFORMIN HYDROCHLORIDE
  11. Nplate subcutaneous solution [Concomitant]
  12. POTASSIUM CHLORIDE [Concomitant]
     Active Substance: POTASSIUM CHLORIDE
  13. MAGNESIUM [Concomitant]
     Active Substance: MAGNESIUM
  14. VITAMIN D [Concomitant]
     Active Substance: VITAMIN D NOS
  15. SPIRIVA [Concomitant]
     Active Substance: TIOTROPIUM BROMIDE MONOHYDRATE
  16. SYSTANE (HYPROMELLOSE 2910 (4000 MPA.S)) [Concomitant]
     Active Substance: HYPROMELLOSE 2910 (4000 MPA.S)
  17. TAMSULOSIN [Concomitant]
     Active Substance: TAMSULOSIN
  18. VITAMIN B12 [Concomitant]
     Active Substance: CYANOCOBALAMIN
  19. VITAMIN E [Concomitant]
     Active Substance: .ALPHA.-TOCOPHEROL

REACTIONS (2)
  - Pain [None]
  - Gait disturbance [None]

NARRATIVE: CASE EVENT DATE: 20220607
